FAERS Safety Report 14680802 (Version 1)
Quarter: 2018Q1

REPORT INFORMATION
  Report Type: Spontaneous
  Country: IT (occurrence: IT)
  Receive Date: 20180326
  Receipt Date: 20180326
  Transmission Date: 20180509
  Serious: Yes (Hospitalization, Other)
  Sender: FDA-Public Use
  Company Number: IT-SA-2018SA029229

PATIENT
  Age: 85 Year
  Sex: Male

DRUGS (15)
  1. AMIODARONE [Interacting]
     Active Substance: AMIODARONE
     Route: 065
  2. RAMIPRIL. [Interacting]
     Active Substance: RAMIPRIL
     Route: 065
  3. ASPIRIN. [Interacting]
     Active Substance: ASPIRIN
     Route: 065
  4. GLUCOSE [Concomitant]
     Active Substance: DEXTROSE
     Indication: HYPOGLYCAEMIA
     Dosage: 33% GLUCOSE SOLUTION AND THE 1,500 ML CONTINUOUS INFUSION OF A 5% GLUCOSE SOLUTION
     Route: 065
  5. GLUCOSE [Concomitant]
     Active Substance: DEXTROSE
     Indication: HYPOGLYCAEMIA
     Dosage: 1,000 ML PER DAY OF A 5% GLUCOSE SOLUTION
     Route: 042
  6. GLUCOSE [Concomitant]
     Active Substance: DEXTROSE
     Indication: HYPOGLYCAEMIA
     Dosage: 10% GLUCOSE
     Route: 065
  7. GLUCOSE [Concomitant]
     Active Substance: DEXTROSE
     Indication: HYPOGLYCAEMIA
     Dosage: 10 ML BOLUS OF 33% GLUCOSE SOLUTION
     Route: 065
  8. CLOPIDOGREL BISULFATE. [Suspect]
     Active Substance: CLOPIDOGREL BISULFATE
     Route: 065
  9. BISOPROLOL SALT NOT SPECIFIED [Interacting]
     Active Substance: BISOPROLOL
     Indication: HYPERTENSION
     Route: 065
  10. LEVOTHYROXINE. [Interacting]
     Active Substance: LEVOTHYROXINE
     Route: 065
  11. ATORVASTATIN [Interacting]
     Active Substance: ATORVASTATIN
     Route: 065
  12. GLUCOSE [Concomitant]
     Active Substance: DEXTROSE
     Indication: HYPOGLYCAEMIA
     Dosage: 10 ML OF A 33% GLUCOSE SOLUTION AND 1,000 ML OF A 10% SOLUTION
     Route: 065
  13. TRIMETHOPRIM/SULFAMETHOXAZOLE [Interacting]
     Active Substance: SULFAMETHOXAZOLE\TRIMETHOPRIM
     Indication: URINARY TRACT INFECTION
     Dosage: 800MG SULFAMETHOXAZOLE/ 160MG TRIMETHOPRIM
     Route: 048
     Dates: start: 201609
  14. INSULIN HUMAN NOS [Interacting]
     Active Substance: INSULIN HUMAN
     Indication: TYPE 2 DIABETES MELLITUS
     Dosage: 30 UNITS DAILY (8 AT BREAKFAST, 12 AT LUNCH, AND 10 AT DINNER
     Route: 065
  15. ESOMEPRAZOLE [Interacting]
     Active Substance: ESOMEPRAZOLE
     Route: 065

REACTIONS (6)
  - Dehydration [Recovered/Resolved]
  - Mental status changes [Recovered/Resolved]
  - Pallor [Recovered/Resolved]
  - Consciousness fluctuating [Recovered/Resolved]
  - Drug interaction [Recovered/Resolved]
  - Hypoglycaemia [Recovered/Resolved]

NARRATIVE: CASE EVENT DATE: 201609
